FAERS Safety Report 15318864 (Version 2)
Quarter: 2019Q2

REPORT INFORMATION
  Report Type: Spontaneous
  Country: US (occurrence: US)
  Receive Date: 20180826
  Receipt Date: 20190429
  Transmission Date: 20190711
  Serious: Yes (Other)
  Sender: FDA-Public Use
  Company Number: US-JNJFOC-20180817579

PATIENT
  Age: 58 Year
  Sex: Female
  Weight: 77.11 kg

DRUGS (2)
  1. XARELTO [Suspect]
     Active Substance: RIVAROXABAN
     Indication: EMBOLIC STROKE
     Route: 048
     Dates: start: 2016, end: 20160406
  2. XARELTO [Suspect]
     Active Substance: RIVAROXABAN
     Indication: EMBOLIC STROKE
     Route: 048
     Dates: start: 20140616, end: 20160317

REACTIONS (3)
  - Off label use [Unknown]
  - Haemarthrosis [Unknown]
  - Product use in unapproved indication [Unknown]

NARRATIVE: CASE EVENT DATE: 20140616
